FAERS Safety Report 15629293 (Version 1)
Quarter: 2018Q4

REPORT INFORMATION
  Report Type: Spontaneous
  Country: PL (occurrence: PL)
  Receive Date: 20181117
  Receipt Date: 20181117
  Transmission Date: 20190205
  Serious: Yes (Hospitalization, Other)
  Sender: FDA-Public Use
  Company Number: PL-B.I. PHARMACEUTICALS,INC./RIDGEFIELD-2018-BI-055518

PATIENT
  Age: 72 Year
  Sex: Female

DRUGS (2)
  1. ENOXAPARIN [Concomitant]
     Active Substance: ENOXAPARIN
     Indication: PRODUCT USED FOR UNKNOWN INDICATION
     Route: 065
  2. PRADAXA [Suspect]
     Active Substance: DABIGATRAN ETEXILATE MESYLATE
     Indication: PRODUCT USED FOR UNKNOWN INDICATION
     Route: 065

REACTIONS (7)
  - Polyuria [Recovered/Resolved]
  - Haematoma [Recovered/Resolved]
  - Asthenia [Recovered/Resolved]
  - Acute kidney injury [Unknown]
  - Abdominal pain [Recovered/Resolved]
  - Anaemia [Unknown]
  - Hypotension [Recovered/Resolved]
